FAERS Safety Report 6504529-1 (Version None)
Quarter: 2009Q4

REPORT INFORMATION
  Report Type: 
  Country: None (occurrence: None)
  Receive Date: 20091215
  Receipt Date: 20091208
  Transmission Date: 20100525
  Serious: Yes (Death, Hospitalization)
  Sender: FDA-Public Use
  Company Number: 2009AC000083

PATIENT
  Age: 89 Year
  Sex: Female

DRUGS (37)
  1. DIGOXIN [Suspect]
     Indication: CARDIAC DISORDER
     Dosage: 0.125 MG; QD; PO
     Route: 048
     Dates: start: 20070201, end: 20080425
  2. DIGOXIN [Suspect]
     Dosage: 0.125 MG; QOD; PO
     Route: 048
     Dates: start: 20080727
  3. METOPROLOL TARTRATE [Concomitant]
  4. LISINOPRIL [Concomitant]
  5. ASPIRIN [Concomitant]
  6. DILTIAZEM [Concomitant]
  7. LASIX [Concomitant]
  8. WARFARIN [Concomitant]
  9. SIMVASTATIN [Concomitant]
  10. OXYBUTYNIN CHLORIDE [Concomitant]
  11. NEXIUM [Concomitant]
  12. VESICARE [Concomitant]
  13. ENABLEX [Concomitant]
  14. LEVOTHYROXINE SODIUM [Concomitant]
  15. AMIODARONE HCL [Concomitant]
  16. LOVENOX [Concomitant]
  17. ADVAIR DISKUS 100/50 [Concomitant]
  18. ALBUTEROL [Concomitant]
  19. OMEPRAZOLE [Concomitant]
  20. GRANULEX [Concomitant]
  21. AMOXICILLIN [Concomitant]
  22. FLUZONE [Concomitant]
  23. PACERONE [Concomitant]
  24. MECLIZINE [Concomitant]
  25. LOTENSIN [Concomitant]
  26. MYTUSSIN [Concomitant]
  27. DIAZEPAM [Concomitant]
  28. BENAZEPRIL HYDROCHLORIDE [Concomitant]
  29. KLOR-CON [Concomitant]
  30. AMBIENT [Concomitant]
  31. VICODIN [Concomitant]
  32. SIMVASTIN-MEPHA [Concomitant]
  33. ZOCOR [Concomitant]
  34. TYLENOL (CAPLET) [Concomitant]
  35. NITROGLYCERIN [Concomitant]
  36. COUMADIN [Concomitant]
  37. ZANTAC [Concomitant]

REACTIONS (38)
  - ABDOMINAL PAIN UPPER [None]
  - ACUTE MYOCARDIAL INFARCTION [None]
  - ANAEMIA [None]
  - ANHEDONIA [None]
  - ARTHRALGIA [None]
  - ATELECTASIS [None]
  - ATRIAL FIBRILLATION [None]
  - CARDIAC FAILURE CONGESTIVE [None]
  - CARDIAC MURMUR [None]
  - CEREBRAL ISCHAEMIA [None]
  - CEREBROVASCULAR ACCIDENT [None]
  - CHEST PAIN [None]
  - CYSTOCELE [None]
  - DEPRESSION [None]
  - DYSPNOEA [None]
  - EMOTIONAL DISTRESS [None]
  - ENURESIS [None]
  - FALL [None]
  - GASTROOESOPHAGEAL REFLUX DISEASE [None]
  - HEARING IMPAIRED [None]
  - HEART RATE ABNORMAL [None]
  - HIP FRACTURE [None]
  - HYPERLIPIDAEMIA [None]
  - HYPOTHYROIDISM [None]
  - INSOMNIA [None]
  - MENTAL STATUS CHANGES [None]
  - MICTURITION URGENCY [None]
  - MULTIPLE INJURIES [None]
  - NOCTURIA [None]
  - PAIN [None]
  - PLEURAL EFFUSION [None]
  - PULMONARY HYPERTENSION [None]
  - RHEUMATOID ARTHRITIS [None]
  - STRESS URINARY INCONTINENCE [None]
  - SYNCOPE [None]
  - URGE INCONTINENCE [None]
  - URINARY TRACT INFECTION [None]
  - URINARY TRACT INFECTION ENTEROCOCCAL [None]
